FAERS Safety Report 7230896-X (Version None)
Quarter: 2011Q1

REPORT INFORMATION
  Report Type: 
  Country: None (occurrence: None)
  Receive Date: 20110118
  Receipt Date: 20110106
  Transmission Date: 20110831
  Serious: Yes (Other)
  Sender: FDA-Public Use
  Company Number: US-ROCHE-730990

PATIENT
  Sex: Male
  Weight: 83.9 kg

DRUGS (1)
  1. ACCUTANE [Suspect]
     Indication: ACNE
     Route: 065
     Dates: start: 19900801, end: 19910501

REACTIONS (15)
  - ANAL FISTULA [None]
  - ANAL STENOSIS [None]
  - INFLAMMATORY BOWEL DISEASE [None]
  - ILEITIS [None]
  - DEPRESSION [None]
  - COLONIC STENOSIS [None]
  - ANAEMIA [None]
  - MYALGIA [None]
  - ARTHRITIS [None]
  - ARTHRALGIA [None]
  - GASTROINTESTINAL INJURY [None]
  - COLITIS [None]
  - INSOMNIA [None]
  - CROHN'S DISEASE [None]
  - COLONIC POLYP [None]
